FAERS Safety Report 5357940-9 (Version None)
Quarter: 2007Q2

REPORT INFORMATION
  Report Type: 
  Country: None (occurrence: None)
  Receive Date: 20070612
  Receipt Date: 20070530
  Transmission Date: 20071010
  Serious: Yes (Other)
  Sender: FDA-Public Use
  Company Number: 1-14985209/MED 07117

PATIENT
  Sex: Female

DRUGS (1)
  1. COTRIM [Suspect]
     Indication: CYSTITIS
     Dosage: 160MG/800MG TWICE DAILY, ORAL
     Route: 048

REACTIONS (12)
  - ABNORMAL BEHAVIOUR [None]
  - AFFECTIVE DISORDER [None]
  - AGITATION [None]
  - COMMUNICATION DISORDER [None]
  - DELUSION [None]
  - DISTURBANCE IN ATTENTION [None]
  - ESCHERICHIA INFECTION [None]
  - HALLUCINATION, AUDITORY [None]
  - PSYCHOTIC DISORDER [None]
  - PYELONEPHRITIS [None]
  - THINKING ABNORMAL [None]
  - UROSEPSIS [None]
